FAERS Safety Report 8607003 (Version 2)
Quarter: 2013Q3

REPORT INFORMATION
  Report Type: Spontaneous
  Country: US (occurrence: US)
  Receive Date: 20120611
  Receipt Date: 20130720
  Transmission Date: 20140515
  Serious: No
  Sender: FDA-Public Use
  Company Number: US-ASTRAZENECA-2012SE34859

PATIENT
  Age: 57 Year
  Sex: Female
  Weight: 75.8 kg

DRUGS (18)
  1. NEXIUM [Suspect]
     Indication: GASTROOESOPHAGEAL REFLUX DISEASE
     Route: 048
     Dates: start: 2000, end: 2012
  2. DEXILANT [Concomitant]
     Indication: GASTROOESOPHAGEAL REFLUX DISEASE
     Dates: start: 2011
  3. RANITIDINE [Concomitant]
     Indication: GASTROOESOPHAGEAL REFLUX DISEASE
     Route: 048
     Dates: start: 2011
  4. RANITIDINE [Concomitant]
     Indication: ABDOMINAL DISCOMFORT
     Route: 048
     Dates: start: 2011
  5. TAGAMET [Concomitant]
     Indication: ABDOMINAL DISCOMFORT
     Dates: start: 1992
  6. DICYCLOMINE [Concomitant]
     Indication: DIARRHOEA
  7. HYDROCODONE [Concomitant]
     Indication: BONE PAIN
  8. ALPRAZOLAM [Concomitant]
     Indication: NEURALGIA
  9. ALPRAZOLAM [Concomitant]
     Indication: NAUSEA
  10. ENDOCET [Concomitant]
     Indication: BONE PAIN
  11. CYCLOBENZAPRINE [Concomitant]
     Indication: MUSCLE RELAXANT THERAPY
  12. GABAPENTIN [Concomitant]
     Indication: NEURALGIA
  13. TIZANIDINE [Concomitant]
     Indication: MUSCLE RELAXANT THERAPY
  14. METOPROLOL [Concomitant]
     Indication: BLOOD PRESSURE ABNORMAL
  15. LISINOPRIL [Concomitant]
     Indication: BLOOD PRESSURE ABNORMAL
  16. HYDROCHLOROTHIAZIDE [Concomitant]
     Indication: BLOOD PRESSURE ABNORMAL
  17. SIMVASTATIN [Concomitant]
     Indication: BLOOD CHOLESTEROL ABNORMAL
  18. METOCLOPRAMIDE [Concomitant]
     Indication: BLOOD PRESSURE ABNORMAL

REACTIONS (10)
  - Multiple fractures [Unknown]
  - Foot fracture [Unknown]
  - Bone disorder [Unknown]
  - Cataract [Unknown]
  - Diabetes mellitus [Unknown]
  - Rheumatoid arthritis [Unknown]
  - Arthritis [Unknown]
  - Depression [Unknown]
  - Wrist fracture [Unknown]
  - Osteoporosis [Unknown]
